FAERS Safety Report 9916000 (Version 1)
Quarter: 2014Q1

REPORT INFORMATION
  Report Type: Spontaneous
  Country: US (occurrence: None)
  Receive Date: 20140220
  Receipt Date: 20140220
  Transmission Date: 20141002
  Serious: Yes (Hospitalization)
  Sender: FDA-Public Use
  Company Number: None

PATIENT
  Age: 67 Year
  Sex: Male
  Weight: 88.9 kg

DRUGS (3)
  1. CARBOPLATIN [Suspect]
  2. CETUXIMAB (ERBITUX) (714692) [Suspect]
  3. PACLITAXEL (TAXOL) [Suspect]

REACTIONS (9)
  - Dizziness [None]
  - Dyspnoea [None]
  - Pain [None]
  - Renal failure acute [None]
  - Tumour lysis syndrome [None]
  - Hepatic failure [None]
  - Dialysis [None]
  - Pericardial effusion [None]
  - Cardiac tamponade [None]
